FAERS Safety Report 12573521 (Version 2)
Quarter: 2019Q4

REPORT INFORMATION
  Report Type: Spontaneous
  Country: US (occurrence: US)
  Receive Date: 20160720
  Receipt Date: 20191202
  Transmission Date: 20200122
  Serious: Yes (Hospitalization, Other)
  Sender: FDA-Public Use
  Company Number: US-PFIZER INC-2016313272

PATIENT
  Age: 82 Year
  Sex: Female
  Weight: 80.74 kg

DRUGS (2)
  1. TIKOSYN [Suspect]
     Active Substance: DOFETILIDE
     Indication: ATRIAL FIBRILLATION
     Dosage: 0.25 MG, UNK
  2. TIKOSYN [Suspect]
     Active Substance: DOFETILIDE
     Dosage: 250 MG, 3X/DAY (250MG THINKS CAPSULES BY MOUTH EVERY 8 HOURS)
     Route: 048
     Dates: start: 201605, end: 20190510

REACTIONS (8)
  - Dyspnoea [Unknown]
  - Pneumonia viral [Unknown]
  - Flatulence [Unknown]
  - Pulmonary hypertension [Unknown]
  - Joint swelling [Unknown]
  - Atrial fibrillation [Unknown]
  - Diarrhoea [Unknown]
  - Micturition disorder [Unknown]

NARRATIVE: CASE EVENT DATE: 2013
